FAERS Safety Report 20569242 (Version 1)
Quarter: 2022Q1

REPORT INFORMATION
  Report Type: Report from Study
  Country: MX (occurrence: MX)
  Receive Date: 20220308
  Receipt Date: 20220308
  Transmission Date: 20220423
  Serious: Yes (Hospitalization)
  Sender: FDA-Public Use
  Company Number: MX-ABBOTT-2021A-1343008

PATIENT
  Age: 14 Year
  Sex: Female
  Weight: 48 kg

DRUGS (4)
  1. DEPAKENE [Suspect]
     Active Substance: VALPROIC ACID
     Indication: Seizure
     Dosage: DAILY DOSE: 10 CUBIC CENTIMETER
     Route: 048
     Dates: start: 1986, end: 1986
  2. DEPAKENE [Suspect]
     Active Substance: VALPROIC ACID
     Dosage: DAILY DOSE: 10 CUBIC CENTIMETER
     Route: 048
     Dates: start: 1986, end: 1990
  3. DEPAKENE [Suspect]
     Active Substance: VALPROIC ACID
     Dosage: DAILY DOSE: 10 CUBIC CENTIMETER
     Route: 048
     Dates: start: 1990
  4. PROPAFENONE HYDROCHLORIDE [Suspect]
     Active Substance: PROPAFENONE HYDROCHLORIDE
     Indication: Product used for unknown indication
     Route: 065

REACTIONS (5)
  - Sepsis [Recovered/Resolved]
  - Sepsis [Recovered/Resolved]
  - Upper limb fracture [Recovered/Resolved]
  - Upper limb fracture [Recovered/Resolved]
  - Inappropriate schedule of product discontinuation [Unknown]

NARRATIVE: CASE EVENT DATE: 19860101
